FAERS Safety Report 4835072-3 (Version None)
Quarter: 2005Q4

REPORT INFORMATION
  Report Type: 
  Country: None (occurrence: None)
  Receive Date: 20051121
  Receipt Date: 20051108
  Transmission Date: 20060501
  Serious: Yes (Death)
  Sender: FDA-Public Use
  Company Number: 219424

PATIENT
  Age: 19 Year
  Sex: Male

DRUGS (2)
  1. NUTROPIN AQ [Suspect]
     Dates: start: 20020801, end: 20030801
  2. NUTROPIN AQ [Suspect]
     Dates: start: 20040401, end: 20051002

REACTIONS (1)
  - RHABDOMYOSARCOMA RECURRENT [None]
